FAERS Safety Report 10189080 (Version 4)
Quarter: 2016Q2

REPORT INFORMATION
  Report Type: Spontaneous
  Country: US (occurrence: US)
  Receive Date: 20140522
  Receipt Date: 20160411
  Transmission Date: 20160815
  Serious: Yes (Hospitalization, Other)
  Sender: FDA-Public Use
  Company Number: US-BAYER-2014-075726

PATIENT
  Age: 21 Year
  Sex: Female
  Weight: 62.59 kg

DRUGS (3)
  1. ENALAPRIL [Concomitant]
     Active Substance: ENALAPRIL
  2. CARVEDIOL [Concomitant]
     Active Substance: CARVEDILOL
  3. MIRENA [Suspect]
     Active Substance: LEVONORGESTREL
     Dosage: 20 MCG/24HR, CONT
     Route: 015
     Dates: start: 201207, end: 20130708

REACTIONS (20)
  - Embedded device [None]
  - Uterine adhesions [None]
  - Pain [None]
  - Anger [None]
  - Anxiety [None]
  - Weight increased [None]
  - Device deployment issue [None]
  - Emotional distress [None]
  - Frustration tolerance decreased [None]
  - Genital haemorrhage [None]
  - Psychological trauma [None]
  - Decreased activity [None]
  - Infertility female [None]
  - Nervous system disorder [None]
  - Asthenia [None]
  - Injury [None]
  - Scar [None]
  - Fear [None]
  - Abdominal discomfort [None]
  - Device issue [None]

NARRATIVE: CASE EVENT DATE: 2013
